FAERS Safety Report 4994215-1 (Version None)
Quarter: 2006Q1

REPORT INFORMATION
  Report Type: 
  Country: None (occurrence: None)
  Receive Date: 20060313
  Receipt Date: 20051024
  Transmission Date: 20060701
  Serious: Yes (Hospitalization)
  Sender: FDA-Public Use
  Company Number: PHEH2005US10334

PATIENT
  Age: 41 Year
  Sex: Female
  Weight: 106.1 kg

DRUGS (8)
  1. TRILEPTAL [Suspect]
     Indication: SCHIZOAFFECTIVE DISORDER
     Dosage: SEE IMAGE
     Route: 048
     Dates: start: 20050901, end: 20050919
  2. TRILEPTAL [Suspect]
     Indication: SCHIZOAFFECTIVE DISORDER
     Dosage: SEE IMAGE
     Route: 048
     Dates: start: 20050717
  3. TRILEPTAL [Suspect]
     Indication: SCHIZOAFFECTIVE DISORDER
     Dosage: SEE IMAGE
     Route: 048
     Dates: start: 20050819
  4. TRILEPTAL [Suspect]
     Indication: SCHIZOAFFECTIVE DISORDER
     Dosage: SEE IMAGE
     Route: 048
     Dates: start: 20050824
  5. SEROQUEL [Concomitant]
  6. ROBAXIN [Concomitant]
  7. LEXAPRO [Concomitant]
  8. ZYPREXA [Concomitant]

REACTIONS (8)
  - AGITATION [None]
  - ASPARTATE AMINOTRANSFERASE INCREASED [None]
  - BLOOD SODIUM DECREASED [None]
  - CONSTIPATION [None]
  - HEPATIC ENZYME ABNORMAL [None]
  - LYMPHOCYTE COUNT DECREASED [None]
  - PSYCHOTIC DISORDER [None]
  - VAGINAL INFECTION [None]
